FAERS Safety Report 5599225-1 (Version None)
Quarter: 2008Q1

REPORT INFORMATION
  Report Type: 
  Country: None (occurrence: None)
  Receive Date: 20080117
  Receipt Date: 20080110
  Transmission Date: 20080703
  Serious: Yes (Hospitalization)
  Sender: FDA-Public Use
  Company Number: 2007-04070

PATIENT
  Age: 72 Year
  Sex: Female
  Weight: 53.5 kg

DRUGS (46)
  1. VELCADE [Suspect]
     Indication: MULTIPLE MYELOMA
     Dosage: 1.00 MG/M2,
     Dates: start: 20070101, end: 20070823
  2. VELCADE [Suspect]
     Indication: MULTIPLE MYELOMA
     Dosage: 1.00 MG/M2,
     Dates: start: 20060429
  3. VELCADE [Suspect]
     Indication: MULTIPLE MYELOMA
     Dosage: 1.00 MG/M2,
     Dates: start: 20060601
  4. VELCADE [Suspect]
     Indication: MULTIPLE MYELOMA
     Dosage: 1.00 MG/M2,
     Dates: start: 20070110
  5. VELCADE [Suspect]
     Indication: MULTIPLE MYELOMA
     Dosage: 1.00 MG/M2,
     Dates: start: 20070406
  6. MELPHALAN(MELPHALAN) VIAL [Suspect]
     Indication: MULTIPLE MYELOMA
     Dosage: 140.00 MG/M2, 140.00 MG/M2,
     Dates: start: 20060712, end: 20060712
  7. MELPHALAN(MELPHALAN) VIAL [Suspect]
     Indication: MULTIPLE MYELOMA
     Dosage: 140.00 MG/M2, 140.00 MG/M2,
     Dates: start: 20061012, end: 20061012
  8. DEXAMETHASONE TAB [Suspect]
     Indication: MULTIPLE MYELOMA
     Dosage: 40.00 MG,
     Dates: start: 20070101, end: 20070823
  9. DEXAMETHASONE TAB [Suspect]
     Indication: MULTIPLE MYELOMA
     Dosage: 40.00 MG,
     Dates: start: 20060502
  10. DEXAMETHASONE TAB [Suspect]
     Indication: MULTIPLE MYELOMA
     Dosage: 40.00 MG,
     Dates: start: 20060601
  11. DEXAMETHASONE TAB [Suspect]
     Indication: MULTIPLE MYELOMA
     Dosage: 40.00 MG,
     Dates: start: 20070110
  12. DEXAMETHASONE TAB [Suspect]
     Indication: MULTIPLE MYELOMA
     Dosage: 40.00 MG,
     Dates: start: 20070406
  13. CISPLATIN [Suspect]
     Indication: MULTIPLE MYELOMA
     Dosage: 10.00 MG/M2,
     Dates: start: 20070101, end: 20070409
  14. CISPLATIN [Suspect]
     Indication: MULTIPLE MYELOMA
     Dosage: 10.00 MG/M2,
     Dates: start: 20060502
  15. CISPLATIN [Suspect]
     Indication: MULTIPLE MYELOMA
     Dosage: 10.00 MG/M2,
     Dates: start: 20060601
  16. CISPLATIN [Suspect]
     Indication: MULTIPLE MYELOMA
     Dosage: 10.00 MG/M2,
     Dates: start: 20070110
  17. CISPLATIN [Suspect]
     Indication: MULTIPLE MYELOMA
     Dosage: 10.00 MG/M2,
     Dates: start: 20070406
  18. DOXORUBICIN HCL [Suspect]
     Indication: MULTIPLE MYELOMA
     Dosage: 10.00 MG/M2,
     Dates: start: 20070101, end: 20070409
  19. DOXORUBICIN HCL [Suspect]
     Indication: MULTIPLE MYELOMA
     Dosage: 10.00 MG/M2,
     Dates: start: 20060502
  20. DOXORUBICIN HCL [Suspect]
     Indication: MULTIPLE MYELOMA
     Dosage: 10.00 MG/M2,
     Dates: start: 20060601
  21. DOXORUBICIN HCL [Suspect]
     Indication: MULTIPLE MYELOMA
     Dosage: 10.00 MG/M2,
     Dates: start: 20070110
  22. DOXORUBICIN HCL [Suspect]
     Indication: MULTIPLE MYELOMA
     Dosage: 10.00 MG/M2,
     Dates: start: 20070406
  23. CYCLOPHOSPHAMIDE [Suspect]
     Indication: MULTIPLE MYELOMA
     Dosage: 400.00 MG/M2,
     Dates: start: 20070101, end: 20070409
  24. CYCLOPHOSPHAMIDE [Suspect]
     Indication: MULTIPLE MYELOMA
     Dosage: 400.00 MG/M2,
     Dates: start: 20060502
  25. CYCLOPHOSPHAMIDE [Suspect]
     Indication: MULTIPLE MYELOMA
     Dosage: 400.00 MG/M2,
     Dates: start: 20060601
  26. CYCLOPHOSPHAMIDE [Suspect]
     Indication: MULTIPLE MYELOMA
     Dosage: 400.00 MG/M2,
     Dates: start: 20070110
  27. CYCLOPHOSPHAMIDE [Suspect]
     Indication: MULTIPLE MYELOMA
     Dosage: 400.00 MG/M2,
     Dates: start: 20070406
  28. ETOPOSIDE [Suspect]
     Indication: MULTIPLE MYELOMA
     Dosage: 40.00 MG/M2,
     Dates: start: 20070101, end: 20070409
  29. ETOPOSIDE [Suspect]
     Indication: MULTIPLE MYELOMA
     Dosage: 40.00 MG/M2,
     Dates: start: 20060502
  30. ETOPOSIDE [Suspect]
     Indication: MULTIPLE MYELOMA
     Dosage: 40.00 MG/M2,
     Dates: start: 20060601
  31. ETOPOSIDE [Suspect]
     Indication: MULTIPLE MYELOMA
     Dosage: 40.00 MG/M2,
     Dates: start: 20070110
  32. ETOPOSIDE [Suspect]
     Indication: MULTIPLE MYELOMA
     Dosage: 40.00 MG/M2,
     Dates: start: 20070406
  33. LISINOPRIL [Concomitant]
  34. PROCRIT [Concomitant]
  35. RANITIDINE HYDROCHLORIDE [Concomitant]
  36. ZOLOFT [Concomitant]
  37. FOLIC ACID [Concomitant]
  38. DIFLUCAN [Concomitant]
  39. BACTRIM DS [Concomitant]
  40. FLAGYL [Concomitant]
  41. ACYCLOVIR [Concomitant]
  42. LEVAQUIN [Concomitant]
  43. MAGIC MOUTHWASH [Concomitant]
  44. OXYCODONE HCL [Concomitant]
  45. IMODIUM A-D [Concomitant]
  46. SLOW-MAG (MAGNESIUM CHLORIDE ANHYDROUS) [Concomitant]

REACTIONS (6)
  - CLOSTRIDIUM DIFFICILE COLITIS [None]
  - CONDITION AGGRAVATED [None]
  - NEUROPATHY PERIPHERAL [None]
  - POLIOMYELITIS [None]
  - ROTAVIRUS INFECTION [None]
  - VIRUS STOOL TEST POSITIVE [None]
